FAERS Safety Report 16918707 (Version 1)
Quarter: 2019Q4

REPORT INFORMATION
  Report Type: Spontaneous
  Country: US (occurrence: US)
  Receive Date: 20191015
  Receipt Date: 20191015
  Transmission Date: 20200122
  Serious: No
  Sender: FDA-Public Use
  Company Number: US-BAYER-2019-182257

PATIENT
  Age: 12 Year
  Sex: Female

DRUGS (1)
  1. NEXAVAR [Suspect]
     Active Substance: SORAFENIB
     Dosage: UNK, BID
     Route: 048
     Dates: start: 201910

REACTIONS (2)
  - Mobility decreased [Not Recovered/Not Resolved]
  - Product use issue [None]
